FAERS Safety Report 9171806 (Version 2)
Quarter: 2014Q2

REPORT INFORMATION
  Report Type: Spontaneous
  Country: TR (occurrence: TR)
  Receive Date: 20130319
  Receipt Date: 20140521
  Transmission Date: 20141212
  Serious: Yes (Hospitalization, Other)
  Sender: FDA-Public Use
  Company Number: TR-AMGEN-TURSP2012080968

PATIENT
  Age: 43 Year
  Sex: Female
  Weight: 75 kg

DRUGS (5)
  1. ENBREL [Suspect]
     Indication: RHEUMATOID ARTHRITIS
     Dosage: 50 MG, WEEKLY
     Route: 058
     Dates: start: 201103, end: 20121203
  2. ENBREL [Suspect]
     Dosage: 50 MG, WEEKLY
     Route: 058
     Dates: end: 201301
  3. ENBREL [Suspect]
     Dosage: 50 MG, QWK
     Route: 058
     Dates: end: 201402
  4. ENBREL [Suspect]
     Dosage: 50 MG, QWK
     Route: 058
     Dates: start: 2014, end: 201403
  5. ENBREL [Suspect]
     Dosage: 50 MG, QWK
     Route: 065
     Dates: start: 2014

REACTIONS (6)
  - Thyroiditis [Unknown]
  - Weight decreased [Recovered/Resolved]
  - Oedema peripheral [Not Recovered/Not Resolved]
  - Appendicitis perforated [Recovered/Resolved]
  - Peritonitis [Recovered/Resolved]
  - Influenza [Recovered/Resolved]
